FAERS Safety Report 20529545 (Version 4)
Quarter: 2023Q1

REPORT INFORMATION
  Report Type: Spontaneous
  Country: US (occurrence: US)
  Receive Date: 20220301
  Receipt Date: 20230215
  Transmission Date: 20230417
  Serious: Yes (Hospitalization, Disabling, Other)
  Sender: FDA-Public Use
  Company Number: US-GILEAD-2022-0571438

PATIENT
  Age: 83 Year
  Sex: Male

DRUGS (6)
  1. VEKLURY [Suspect]
     Active Substance: REMDESIVIR
     Indication: COVID-19
     Dosage: UNK
     Route: 065
     Dates: start: 20221110, end: 20221110
  2. VEKLURY [Suspect]
     Active Substance: REMDESIVIR
     Indication: Hypoxia
     Dosage: UNK
     Route: 065
     Dates: start: 20211111, end: 20211111
  3. VEKLURY [Suspect]
     Active Substance: REMDESIVIR
     Dosage: UNK X 3 DOSES
     Route: 065
     Dates: start: 20211112, end: 20211114
  4. VEKLURY [Suspect]
     Active Substance: REMDESIVIR
     Dosage: UNK
     Route: 065
  5. MONOCLONAL ANTIBODIES, GRANULOCYTE [Concomitant]
     Indication: COVID-19
     Dosage: UNK
     Dates: start: 20221109, end: 20221109
  6. DECADRON [Concomitant]
     Active Substance: DEXAMETHASONE
     Indication: Hypoxia
     Dosage: UNK
     Dates: start: 20221110

REACTIONS (9)
  - Cerebral infarction [Not Recovered/Not Resolved]
  - Vascular occlusion [Unknown]
  - Haematoma [Unknown]
  - Swelling face [Unknown]
  - Peripheral swelling [Unknown]
  - Cerebrovascular accident [Not Recovered/Not Resolved]
  - Leg amputation [Unknown]
  - Product contamination physical [Recovered/Resolved]
  - Recalled product administered [Recovered/Resolved]

NARRATIVE: CASE EVENT DATE: 20211101
